FAERS Safety Report 16909618 (Version 1)
Quarter: 2019Q4

REPORT INFORMATION
  Report Type: Spontaneous
  Country: US (occurrence: US)
  Receive Date: 20191011
  Receipt Date: 20191011
  Transmission Date: 20200122
  Serious: No
  Sender: FDA-Public Use
  Company Number: US-GLAXOSMITHKLINE-US2019179790

PATIENT
  Age: 76 Year
  Sex: Male

DRUGS (1)
  1. VOLTAREN [Suspect]
     Active Substance: DICLOFENAC SODIUM
     Indication: PAIN
     Dosage: UNK UNK, SINGLE
     Route: 062
     Dates: start: 20191001

REACTIONS (3)
  - Epistaxis [Unknown]
  - Incorrect dose administered [Unknown]
  - Ear pruritus [Unknown]

NARRATIVE: CASE EVENT DATE: 20191001
